FAERS Safety Report 6813138-6 (Version None)
Quarter: 2010Q3

REPORT INFORMATION
  Report Type: 
  Country: None (occurrence: None)
  Receive Date: 20100701
  Receipt Date: 20100622
  Transmission Date: 20110219
  Serious: Yes (Other)
  Sender: FDA-Public Use
  Company Number: GR-PFIZER INC-2010078020

PATIENT
  Sex: Female

DRUGS (3)
  1. ZOLOFT [Suspect]
     Indication: ANTIDEPRESSANT THERAPY
     Dosage: UNK
     Route: 048
     Dates: start: 19950101
  2. PERPHENAZINE AND AMITRIPTYLINE HCL [Concomitant]
     Dosage: UNK
  3. SEROXAT ^SMITH KLINE BEECHAM^ [Concomitant]
     Dosage: UNK

REACTIONS (1)
  - RETINAL DISORDER [None]
